FAERS Safety Report 21451695 (Version 3)
Quarter: 2022Q4

REPORT INFORMATION
  Report Type: Spontaneous
  Country: CA (occurrence: CA)
  Receive Date: 20221013
  Receipt Date: 20221129
  Transmission Date: 20230112
  Serious: Yes (Hospitalization, Other)
  Sender: FDA-Public Use
  Company Number: CA-MYLANLABS-2022M1113512

PATIENT
  Age: 56 Year
  Sex: Male

DRUGS (21)
  1. PANTOPRAZOLE [Suspect]
     Active Substance: PANTOPRAZOLE
     Indication: Gastrooesophageal reflux disease
     Dosage: 40 MILLIGRAM, QD
     Route: 065
     Dates: start: 2009
  2. RISPERIDONE [Suspect]
     Active Substance: RISPERIDONE
     Indication: Antipsychotic therapy
     Dosage: 4 MILLIGRAM, QD
     Route: 065
     Dates: start: 2020
  3. VENLAFAXINE [Suspect]
     Active Substance: VENLAFAXINE HYDROCHLORIDE
     Indication: Anxiety
     Dosage: 112.5 MILLIGRAM, QD
     Route: 065
  4. VENLAFAXINE [Suspect]
     Active Substance: VENLAFAXINE HYDROCHLORIDE
     Indication: Depression
  5. PREGABALIN [Suspect]
     Active Substance: PREGABALIN
     Indication: Anxiety
     Dosage: 150 MILLIGRAM, QD
     Route: 065
  6. CLONAZEPAM [Suspect]
     Active Substance: CLONAZEPAM
     Indication: Anxiety
     Dosage: 0.25 MILLIGRAM, BID
     Route: 065
  7. CLONAZEPAM [Suspect]
     Active Substance: CLONAZEPAM
     Dosage: 0.5 MILLIGRAM, QD, AT BEDTIME
     Route: 065
  8. CLONAZEPAM [Suspect]
     Active Substance: CLONAZEPAM
     Dosage: 0.25 MILLIGRAM, QOD, PER COMMUNITY PHARMACY, TAKEN REGULARLY
     Route: 065
  9. LAMOTRIGINE [Suspect]
     Active Substance: LAMOTRIGINE
     Indication: Affective disorder
     Dosage: 300 MILLIGRAM, QD
     Route: 065
  10. QUETIAPINE [Suspect]
     Active Substance: QUETIAPINE
     Indication: Sleep disorder
     Dosage: 75 MILLIGRAM, QD RECEIVED UP TO 75MG AT BEDTIME
     Route: 065
     Dates: start: 2020
  11. OLANZAPINE [Suspect]
     Active Substance: OLANZAPINE
     Indication: Antipsychotic therapy
     Dosage: 15 MILLIGRAM, QD UP TO 15MG AT BEDTIME
     Route: 065
     Dates: start: 2020
  12. ATORVASTATIN [Suspect]
     Active Substance: ATORVASTATIN
     Indication: Myocardial infarction
     Dosage: 80 MILLIGRAM, QD
     Route: 065
     Dates: start: 2010
  13. ASENAPINE [Concomitant]
     Active Substance: ASENAPINE
     Indication: Antipsychotic therapy
     Dosage: 5 MILLIGRAM, QD, AT BEDTIME
     Route: 060
     Dates: start: 2019
  14. LITHIUM [Concomitant]
     Active Substance: LITHIUM
     Indication: Affective disorder
     Dosage: 450 MILLIGRAM, BID
     Route: 065
  15. PROPRANOLOL [Concomitant]
     Active Substance: PROPRANOLOL HYDROCHLORIDE
     Indication: Product used for unknown indication
     Dosage: 10 MILLIGRAM, TID RECEIVED 3 TIMES DAILY
     Route: 065
     Dates: start: 2016
  16. ZOPICLONE [Concomitant]
     Active Substance: ZOPICLONE
     Indication: Insomnia
     Dosage: 7.5 MILLIGRAM,AT BEDTIME AND DURING THE DAY IF REQUIRED
     Route: 065
  17. METFORMIN [Concomitant]
     Active Substance: METFORMIN HYDROCHLORIDE
     Indication: Diabetes mellitus
     Dosage: 500 MILLIGRAM, BID
     Route: 065
  18. CANAGLIFLOZIN [Concomitant]
     Active Substance: CANAGLIFLOZIN
     Indication: Diabetes mellitus
     Dosage: 100 MILLIGRAM, QD,IN THE MORNING
     Route: 065
  19. NITROGLYCERIN [Concomitant]
     Active Substance: NITROGLYCERIN
     Indication: Chest pain
     Dosage: 0.4 MILLIGRAM, PRN ASNECESSARY
     Route: 065
     Dates: start: 2010
  20. RAMIPRIL [Concomitant]
     Active Substance: RAMIPRIL
     Indication: Myocardial infarction
     Dosage: 10 MILLIGRAM, QD
     Route: 065
     Dates: start: 2010
  21. ASPIRIN [Concomitant]
     Active Substance: ASPIRIN
     Indication: Myocardial infarction
     Dosage: 81 MILLIGRAM, QD, IN THE MORNING
     Route: 065
     Dates: start: 2010

REACTIONS (6)
  - Suicidal ideation [Unknown]
  - Depression [Recovered/Resolved]
  - Diabetes mellitus [Unknown]
  - Product prescribing error [Recovering/Resolving]
  - Hallucination, auditory [Recovering/Resolving]
  - Anxiety [Unknown]
